FAERS Safety Report 6155939-6 (Version None)
Quarter: 2009Q2

REPORT INFORMATION
  Report Type: 
  Country: None (occurrence: None)
  Receive Date: 20090415
  Receipt Date: 20090406
  Transmission Date: 20091009
  Serious: Yes (Death, Other)
  Sender: FDA-Public Use
  Company Number: JP-ROCHE-625950

PATIENT
  Age: 77 Year
  Sex: Female

DRUGS (6)
  1. TICLOPIDINE HCL [Suspect]
     Indication: DRUG USE FOR UNKNOWN INDICATION
     Route: 065
  2. HEPARIN SODIUM [Suspect]
     Indication: DRUG USE FOR UNKNOWN INDICATION
     Dosage: UNIT WAS REPORTED AS U. IU WAS ENTERED DUE TO ADVENT LIMITATION.
     Route: 065
  3. NICORANDIL [Suspect]
     Route: 065
  4. ASPIRIN [Suspect]
     Route: 065
  5. PREDNISOLONE [Concomitant]
  6. METHYLPREDNISOLONE 4MG TAB [Concomitant]

REACTIONS (10)
  - ABDOMINAL PAIN [None]
  - ACTIVATED PARTIAL THROMBOPLASTIN TIME PROLONGED [None]
  - ACUTE RESPIRATORY DISTRESS SYNDROME [None]
  - BLOOD PRESSURE DECREASED [None]
  - DISSEMINATED INTRAVASCULAR COAGULATION [None]
  - HAEMATOMA [None]
  - HAEMOGLOBIN DECREASED [None]
  - MUSCLE HAEMORRHAGE [None]
  - OLIGURIA [None]
  - TACHYCARDIA [None]
